FAERS Safety Report 7610867-1 (Version None)
Quarter: 2011Q3

REPORT INFORMATION
  Report Type: 
  Country: None (occurrence: None)
  Receive Date: 20110715
  Receipt Date: 20110705
  Transmission Date: 20111222
  Serious: Yes (Hospitalization, Other)
  Sender: FDA-Public Use
  Company Number: US-BAYER-201026346NA

PATIENT
  Age: 29 Year
  Sex: Female
  Weight: 115.65 kg

DRUGS (8)
  1. YASMIN [Suspect]
     Indication: VAGINAL HAEMORRHAGE
     Dosage: 2 DF, QD
     Route: 048
     Dates: start: 20050401, end: 20050701
  2. PROMETHAZINE [Concomitant]
     Dosage: UNK
     Dates: start: 20050524
  3. SPIRONOLACTONE [Concomitant]
     Dosage: 25 MG, UNK
     Dates: start: 20050427
  4. LUPRON [Concomitant]
     Dosage: PLAN: 6 MONTHS
     Route: 030
     Dates: start: 20041101, end: 20050415
  5. LEVOTHYROXINE [Concomitant]
     Dosage: UNK
     Dates: start: 20050501, end: 20050801
  6. ZYRTEC-D 12 HOUR [Concomitant]
     Dosage: UNK
     Dates: start: 20050505
  7. SYNTHROID [Concomitant]
     Dosage: UNK
     Dates: start: 19980101
  8. NORCO [Concomitant]
     Dosage: UNK
     Dates: start: 20050524

REACTIONS (8)
  - THROMBOSIS [None]
  - DYSPNOEA [None]
  - HEADACHE [None]
  - PULMONARY EMBOLISM [None]
  - DEEP VEIN THROMBOSIS [None]
  - VOMITING [None]
  - NAUSEA [None]
  - CHEST PAIN [None]
